FAERS Safety Report 6310459-0 (Version None)
Quarter: 2009Q3

REPORT INFORMATION
  Report Type: 
  Country: None (occurrence: None)
  Receive Date: 20090814
  Receipt Date: 20090802
  Transmission Date: 20100115
  Serious: Yes (Other)
  Sender: FDA-Public Use
  Company Number: AU-MYLANLABS-2009S1013788

PATIENT
  Age: 75 Year
  Sex: Female

DRUGS (4)
  1. SIMVASTATIN [Interacting]
     Indication: BLOOD CHOLESTEROL INCREASED
  2. GEMFIBROZIL [Suspect]
  3. VERAPAMIL [Interacting]
  4. CELECOXIB [Interacting]

REACTIONS (2)
  - DRUG INTERACTION [None]
  - MYOPATHY [None]
